FAERS Safety Report 21072802 (Version 1)
Quarter: 2022Q3

REPORT INFORMATION
  Report Type: Report from Study
  Country: FR (occurrence: FR)
  Receive Date: 20220712
  Receipt Date: 20220712
  Transmission Date: 20221027
  Serious: Yes (Death, Other)
  Sender: FDA-Public Use
  Company Number: FR-GILEAD-2022-0575887

PATIENT
  Sex: Female
  Weight: 70 kg

DRUGS (3)
  1. SACITUZUMAB GOVITECAN [Suspect]
     Active Substance: SACITUZUMAB GOVITECAN
     Indication: Triple negative breast cancer
     Dosage: 10 MG/KG C1D1 AND C1D8
     Route: 042
     Dates: start: 20220307, end: 20220314
  2. SACITUZUMAB GOVITECAN [Suspect]
     Active Substance: SACITUZUMAB GOVITECAN
     Dosage: 10 MG/KG C2D1-D8
     Route: 042
     Dates: start: 20220328, end: 20220404
  3. SACITUZUMAB GOVITECAN [Suspect]
     Active Substance: SACITUZUMAB GOVITECAN
     Dosage: 10 MG/KG C3D1
     Route: 042
     Dates: start: 20220419, end: 20220429

REACTIONS (9)
  - Death [Fatal]
  - Drug ineffective [Unknown]
  - Sinusitis [Recovered/Resolved]
  - Nausea [Not Recovered/Not Resolved]
  - Abdominal pain upper [Not Recovered/Not Resolved]
  - Decreased appetite [Not Recovered/Not Resolved]
  - Asthenia [Not Recovered/Not Resolved]
  - Supraclavicular fossa pain [Not Recovered/Not Resolved]
  - Inappropriate schedule of product administration [Recovered/Resolved]

NARRATIVE: CASE EVENT DATE: 20220301
